FAERS Safety Report 17661854 (Version 1)
Quarter: 2020Q2

REPORT INFORMATION
  Report Type: Spontaneous
  Country: PL (occurrence: PL)
  Receive Date: 20200413
  Receipt Date: 20200413
  Transmission Date: 20200713
  Serious: Yes (Other)
  Sender: FDA-Public Use
  Company Number: PL-AMGEN-POLSP2020058961

PATIENT
  Age: 62 Year
  Sex: Male

DRUGS (6)
  1. VECTIBIX [Suspect]
     Active Substance: PANITUMUMAB
     Dosage: 6 MILLIGRAM/KILOGRAM, Q2WK (IN MONOTHERAPY)
     Route: 065
     Dates: start: 201911
  2. LEUCOVORINE [Concomitant]
     Active Substance: LEUCOVORIN
     Indication: COLON CANCER
     Dosage: 100 MILLIGRAM/SQ. METER, Q2WK (DAY 1-2)
     Route: 042
     Dates: start: 201904, end: 201911
  3. 5 FLUORO URACIL [Concomitant]
     Active Substance: FLUOROURACIL
     Dosage: 400 MILLIGRAM/SQ. METER, Q2WK (1-2 DAYS)
     Route: 042
     Dates: start: 201904, end: 201911
  4. VECTIBIX [Suspect]
     Active Substance: PANITUMUMAB
     Indication: COLON CANCER
     Dosage: 6 MILLIGRAM/KILOGRAM, Q2WK (IN COMBINATION WITH FOLFOX4)
     Route: 065
     Dates: start: 201904, end: 201911
  5. 5 FLUORO URACIL [Concomitant]
     Active Substance: FLUOROURACIL
     Indication: COLON CANCER
     Dosage: 400 MILLIGRAM/SQ. METER, Q2WK (1-2 DAYS)
     Route: 040
     Dates: start: 201904, end: 201911
  6. OXALIPLATIN. [Suspect]
     Active Substance: OXALIPLATIN
     Indication: COLON CANCER
     Dosage: 85 MILLIGRAM/SQ. METER, Q2WK (DAY 1)
     Route: 042
     Dates: start: 201904, end: 201911

REACTIONS (2)
  - Neurotoxicity [Unknown]
  - Thrombocytopenia [Unknown]

NARRATIVE: CASE EVENT DATE: 2019
